FAERS Safety Report 21180060 (Version 1)
Quarter: 2022Q3

REPORT INFORMATION
  Report Type: Spontaneous
  Country: US (occurrence: None)
  Receive Date: 20220805
  Receipt Date: 20220805
  Transmission Date: 20221027
  Serious: No
  Sender: FDA-Public Use
  Company Number: None

PATIENT
  Sex: Male

DRUGS (2)
  1. CINACALCET HYDROCHLORIDE [Suspect]
     Active Substance: CINACALCET HYDROCHLORIDE
     Indication: End stage renal disease
     Dosage: FREQUENCY : DAILY;?
     Route: 048
     Dates: start: 20220803
  2. TACROLIMUS [Suspect]
     Active Substance: TACROLIMUS
     Indication: End stage renal disease
     Dosage: FREQUENCY : DAILY;?
     Route: 048
     Dates: start: 20191127

REACTIONS (2)
  - Cerebrovascular accident [None]
  - Chronic kidney disease [None]
